FAERS Safety Report 8418343-3 (Version None)
Quarter: 2012Q2

REPORT INFORMATION
  Report Type: 
  Country: None (occurrence: None)
  Receive Date: 20120323
  Receipt Date: 20110404
  Transmission Date: 20120825
  Serious: Yes (Other)
  Sender: FDA-Public Use
  Company Number: 163-21880-11020626

PATIENT
  Age: 62 Year
  Sex: Male
  Weight: 132.4503 kg

DRUGS (30)
  1. PAROXETINE HCL [Concomitant]
  2. SIMVASTATIN [Concomitant]
  3. PAROXETINE HCL [Concomitant]
  4. REVLIMID [Suspect]
     Indication: MULTIPLE MYELOMA
     Dosage: 25 MG, DAYS 1-25, PO ; 10 MG, 1 IN 1 D, PO ; 10 MG, 1 IN 1 D, PO
     Route: 048
     Dates: start: 20100310, end: 20100701
  5. REVLIMID [Suspect]
     Indication: MULTIPLE MYELOMA
     Dosage: 25 MG, DAYS 1-25, PO ; 10 MG, 1 IN 1 D, PO ; 10 MG, 1 IN 1 D, PO
     Route: 048
     Dates: start: 20101111, end: 20110210
  6. REVLIMID [Suspect]
     Indication: MULTIPLE MYELOMA
     Dosage: 25 MG, DAYS 1-25, PO ; 10 MG, 1 IN 1 D, PO ; 10 MG, 1 IN 1 D, PO
     Route: 048
     Dates: start: 20110224
  7. WARFARIN SODIUM [Concomitant]
  8. ENOXAPARIN SODIUM [Concomitant]
  9. CARVEDILOL [Concomitant]
  10. ASPIRIN [Concomitant]
  11. AUGMENTIN '125' [Concomitant]
  12. SPIRONOLACTONE [Concomitant]
  13. OMEPRAZOLE [Concomitant]
  14. ZOLPIDEM TARTRATE [Concomitant]
  15. BACTRIM DS [Concomitant]
  16. NOVOLOG [Concomitant]
  17. FUROSEMIDE [Concomitant]
  18. LISINOPRIL [Concomitant]
  19. ALLOPURINOL [Concomitant]
  20. DEXAMETHASONE [Concomitant]
  21. ZOLEDRONIC ACID [Concomitant]
  22. PACKED RED BLOOD CELLS (BLOOD CELLS, PACKED HUMAN) [Concomitant]
  23. PNEUMOCOCCAL VACCINE (PNEUMOCOCCAL VACCINE) [Concomitant]
  24. CALCIUM CARBONATE [Concomitant]
  25. AMBIEN [Concomitant]
  26. AREDIA [Concomitant]
  27. METFORMIN HCL [Concomitant]
  28. MULTIVITAMIN [Concomitant]
  29. GLIMEPIRIDE [Concomitant]
  30. PAMIDRONATE DISODIUM [Concomitant]

REACTIONS (3)
  - THROMBOCYTOPENIA [None]
  - NEUTROPENIA [None]
  - DEEP VEIN THROMBOSIS [None]
